FAERS Safety Report 25734228 (Version 1)
Quarter: 2025Q3

REPORT INFORMATION
  Report Type: Spontaneous
  Country: JP (occurrence: JP)
  Receive Date: 20250828
  Receipt Date: 20250828
  Transmission Date: 20251021
  Serious: Yes (Death, Hospitalization, Other)
  Sender: ACCORD
  Company Number: JP-Accord-501234

PATIENT
  Age: 86 Year
  Sex: Female

DRUGS (2)
  1. BENDAMUSTINE [Suspect]
     Active Substance: BENDAMUSTINE
     Indication: B-cell lymphoma stage I
  2. RITUXIMAB [Suspect]
     Active Substance: RITUXIMAB
     Indication: B-cell lymphoma stage I

REACTIONS (5)
  - Myelodysplastic syndrome [Unknown]
  - Cytomegalovirus viraemia [Unknown]
  - Myelosuppression [Unknown]
  - Brain abscess [Fatal]
  - Acute febrile neutrophilic dermatosis [Unknown]
